FAERS Safety Report 19264692 (Version 1)
Quarter: 2021Q2

REPORT INFORMATION
  Report Type: Spontaneous
  Country: US (occurrence: US)
  Receive Date: 20210517
  Receipt Date: 20210517
  Transmission Date: 20210717
  Serious: No
  Sender: FDA-Public Use
  Company Number: None

PATIENT
  Age: 63 Year
  Sex: Male

DRUGS (5)
  1. TRANEXAMIC ACID 650 MG [Concomitant]
     Active Substance: TRANEXAMIC ACID
     Dates: start: 20210414
  2. PROMACTA [Suspect]
     Active Substance: ELTROMBOPAG OLAMINE
     Indication: APLASTIC ANAEMIA
     Route: 048
     Dates: start: 20210120, end: 20210513
  3. CEFPODOXIME PRO 200 MG [Concomitant]
     Dates: start: 20201016
  4. VALACYCLOVIR 500 MG [Concomitant]
     Active Substance: VALACYCLOVIR HYDROCHLORIDE
     Dates: start: 20210316
  5. PANTOPRAZOLE 40 MG [Concomitant]
     Active Substance: PANTOPRAZOLE SODIUM
     Dates: start: 20210213

REACTIONS (1)
  - Cataract [None]

NARRATIVE: CASE EVENT DATE: 20210513
